FAERS Safety Report 12874340 (Version 2)
Quarter: 2016Q4

REPORT INFORMATION
  Report Type: Spontaneous
  Country: JP (occurrence: JP)
  Receive Date: 20161021
  Receipt Date: 20161118
  Transmission Date: 20170207
  Serious: Yes (Congenital Anomaly, Other)
  Sender: FDA-Public Use
  Company Number: JP-SA-2016SA193446

PATIENT
  Age: 1 Day
  Weight: 3.23 kg

DRUGS (1)
  1. MYSLEE [Suspect]
     Active Substance: ZOLPIDEM TARTRATE
     Route: 064

REACTIONS (1)
  - Convulsion neonatal [Recovered/Resolved]

NARRATIVE: CASE EVENT DATE: 20161008
